FAERS Safety Report 5263868-5 (Version None)
Quarter: 2007Q1

REPORT INFORMATION
  Report Type: 
  Country: None (occurrence: None)
  Receive Date: 20061213
  Receipt Date: 20050321
  Transmission Date: 20070707
  Serious: Yes (Other)
  Sender: FDA-Public Use
  Company Number: 2005UW04456

PATIENT
  Age: 61 Year
  Sex: Male
  Weight: 64.2 kg

DRUGS (4)
  1. IRESSA [Suspect]
     Indication: LUNG NEOPLASM MALIGNANT
     Dosage: 250 MG PO
     Route: 048
  2. PERCOCET [Concomitant]
  3. PAXIL [Concomitant]
  4. VALIUM [Concomitant]

REACTIONS (1)
  - ALLERGY TEST POSITIVE [None]
